FAERS Safety Report 9632073 (Version 1)
Quarter: 2013Q4

REPORT INFORMATION
  Report Type: Spontaneous
  Country: US (occurrence: None)
  Receive Date: 20131017
  Receipt Date: 20131017
  Transmission Date: 20140711
  Serious: Yes (Other)
  Sender: FDA-Public Use
  Company Number: None

PATIENT
  Age: 53 None
  Sex: Male
  Weight: 83.92 kg

DRUGS (1)
  1. DOXY-CYCL HYCL [Suspect]
     Indication: TOOTH INFECTION
     Dosage: 20  1 CAPSULE 2X A DAY
     Route: 048
     Dates: start: 20130924, end: 20131002

REACTIONS (1)
  - Drug ineffective [None]
